FAERS Safety Report 11101841 (Version 1)
Quarter: 2015Q2

REPORT INFORMATION
  Report Type: Spontaneous
  Country: US (occurrence: US)
  Receive Date: 20150509
  Receipt Date: 20150509
  Transmission Date: 20150821
  Serious: No
  Sender: FDA-Public Use
  Company Number: US-ASTRAZENECA-2015SE40719

PATIENT
  Sex: Female
  Weight: 58.1 kg

DRUGS (2)
  1. OMEPRAZOLE. [Suspect]
     Active Substance: OMEPRAZOLE
     Route: 048
  2. SYMLIN [Suspect]
     Active Substance: PRAMLINTIDE ACETATE
     Indication: TYPE 1 DIABETES MELLITUS
     Dosage: 1 MG/1.5 ML
     Route: 058

REACTIONS (3)
  - Arthralgia [Unknown]
  - Blood glucose increased [Recovered/Resolved]
  - Arthritis [Unknown]
